FAERS Safety Report 14850060 (Version 5)
Quarter: 2018Q2

REPORT INFORMATION
  Report Type: Report from Study
  Country: US (occurrence: US)
  Receive Date: 20180504
  Receipt Date: 20180606
  Transmission Date: 20180711
  Serious: Yes (Hospitalization)
  Sender: FDA-Public Use
  Company Number: US-ACTELION-A-NJ2018-171554

PATIENT
  Age: 43 Year
  Sex: Female
  Weight: 126.98 kg

DRUGS (10)
  1. VELETRI [Suspect]
     Active Substance: EPOPROSTENOL
     Dosage: 10 NG/KG, PER MIN
     Route: 042
  2. ZAROXOLYN [Concomitant]
     Active Substance: METOLAZONE
     Dosage: 5 MG, UNK
  3. VELETRI [Suspect]
     Active Substance: EPOPROSTENOL
     Dosage: 5 NG/KG, PER MIN
     Route: 042
     Dates: start: 20180409
  4. VELETRI [Suspect]
     Active Substance: EPOPROSTENOL
     Dosage: 9 NG/KG, PER MIN
     Route: 042
  5. ADCIRCA [Concomitant]
     Active Substance: TADALAFIL
  6. NEURONTIN [Concomitant]
     Active Substance: GABAPENTIN
     Dosage: 180 MG, TID (2 CAP)
  7. VELETRI [Suspect]
     Active Substance: EPOPROSTENOL
     Indication: PULMONARY ARTERIAL HYPERTENSION
     Dosage: 13 NG/KG, PER MIN
     Route: 042
  8. OPSUMIT [Suspect]
     Active Substance: MACITENTAN
     Indication: PULMONARY ARTERIAL HYPERTENSION
     Dosage: 10 MG, QD
     Route: 048
     Dates: start: 20170210
  9. LASIX [Concomitant]
     Active Substance: FUROSEMIDE
     Dosage: 80 MG, BID
     Route: 042
  10. K [Concomitant]
     Dosage: 4 TABS, BID

REACTIONS (22)
  - Condition aggravated [Unknown]
  - Dyspnoea [Unknown]
  - Headache [Unknown]
  - Vomiting [Unknown]
  - Diarrhoea [Unknown]
  - Fluid overload [Unknown]
  - Polyuria [Unknown]
  - Fluid retention [Unknown]
  - Oedema peripheral [Unknown]
  - Cor pulmonale [Unknown]
  - Blood creatinine increased [Unknown]
  - Central venous catheterisation [Unknown]
  - Venous thrombosis [Unknown]
  - Pain [Unknown]
  - Blood potassium decreased [Unknown]
  - Pain in jaw [Unknown]
  - Dyspnoea exertional [Unknown]
  - Pain in extremity [Unknown]
  - Nausea [Unknown]
  - Back pain [Unknown]
  - Cardiac failure [Unknown]
  - Unevaluable event [Unknown]

NARRATIVE: CASE EVENT DATE: 201804
